FAERS Safety Report 5414250-9 (Version None)
Quarter: 2007Q3

REPORT INFORMATION
  Report Type: 
  Country: None (occurrence: None)
  Receive Date: 20070814
  Receipt Date: 20070806
  Transmission Date: 20080115
  Serious: Yes (Death)
  Sender: FDA-Public Use
  Company Number: EG-PFIZER INC-2007064929

PATIENT
  Age: 5 Day
  Sex: Male
  Weight: 3.5 kg

DRUGS (2)
  1. DIFLUCAN [Suspect]
     Indication: ORAL CANDIDIASIS
     Route: 048
  2. VITAMIN CAP [Concomitant]

REACTIONS (1)
  - HAEMORRHAGIC DIATHESIS [None]
